FAERS Safety Report 25018213 (Version 1)
Quarter: 2025Q1

REPORT INFORMATION
  Report Type: Spontaneous
  Country: US (occurrence: None)
  Receive Date: 20250227
  Receipt Date: 20250227
  Transmission Date: 20250408
  Serious: Yes (unspecified)
  Sender: FDA-CTU
  Company Number: None

PATIENT
  Age: 75 Year
  Sex: Female

DRUGS (2)
  1. CEFEPIME [Suspect]
     Active Substance: CEFEPIME HYDROCHLORIDE
     Indication: Device related infection
     Dosage: FREQUENCY : TWICE A DAY;?
     Route: 042
     Dates: start: 20250119, end: 20250207
  2. CEFEPIME [Suspect]
     Active Substance: CEFEPIME HYDROCHLORIDE
     Indication: Arthritis infective

REACTIONS (12)
  - Rash [None]
  - Rash [None]
  - Rash [None]
  - Rash [None]
  - Rash [None]
  - Rash [None]
  - Therapy cessation [None]
  - Type IV hypersensitivity reaction [None]
  - Urticaria [None]
  - Dermatitis contact [None]
  - Eosinophil count increased [None]
  - Infusion related hypersensitivity reaction [None]

NARRATIVE: CASE EVENT DATE: 20250207
